FAERS Safety Report 6076508-2 (Version None)
Quarter: 2009Q1

REPORT INFORMATION
  Report Type: 
  Country: None (occurrence: None)
  Receive Date: 20090213
  Receipt Date: 20090113
  Transmission Date: 20090719
  Serious: No
  Sender: FDA-Public Use
  Company Number: US-BAYER-200910894NA

PATIENT
  Age: 62 Year
  Sex: Female

DRUGS (6)
  1. AVELOX [Suspect]
     Indication: NASOPHARYNGITIS
     Dosage: TOTAL DAILY DOSE: 400 MG  UNIT DOSE: 400 MG
     Dates: start: 20081217
  2. ALVESCO [Suspect]
     Indication: COUGH
     Dosage: TOTAL DAILY DOSE: 320 ?G  UNIT DOSE: 160 ?G
     Route: 055
     Dates: start: 20081217, end: 20081223
  3. SINGULAIR [Concomitant]
  4. NEXIUM [Concomitant]
  5. KLONOPIN [Concomitant]
  6. PRAVACHOL [Concomitant]

REACTIONS (1)
  - GINGIVAL BLISTER [None]
